FAERS Safety Report 4489267-1 (Version None)
Quarter: 2004Q4

REPORT INFORMATION
  Report Type: 
  Country: None (occurrence: None)
  Receive Date: 20041029
  Receipt Date: 20041022
  Transmission Date: 20050328
  Serious: Yes (Other)
  Sender: FDA-Public Use
  Company Number: US-AMGEN-US097101

PATIENT
  Sex: Female

DRUGS (4)
  1. ENBREL [Suspect]
     Indication: RHEUMATOID ARTHRITIS
  2. METHOTREXATE [Concomitant]
  3. EVOXAC [Concomitant]
  4. CYCLOSPORINE [Concomitant]

REACTIONS (1)
  - BLEPHAROSPASM [None]
